FAERS Safety Report 9562148 (Version 2)
Quarter: 2014Q1

REPORT INFORMATION
  Report Type: Spontaneous
  Country: FR (occurrence: FR)
  Receive Date: 20130927
  Receipt Date: 20140109
  Transmission Date: 20141002
  Serious: Yes (Hospitalization, Other)
  Sender: FDA-Public Use
  Company Number: FR-PFIZER INC-2013274536

PATIENT
  Age: 88 Year
  Sex: Female

DRUGS (6)
  1. NEURONTIN [Suspect]
     Dosage: 300 MG, 1X/DAY
     Route: 048
     Dates: end: 20130828
  2. LAROXYL [Suspect]
     Dosage: 15 MG, 1X/DAY
     Route: 048
     Dates: end: 20130828
  3. TOFRANIL [Suspect]
     Dosage: UNK
     Route: 048
     Dates: end: 20130828
  4. KARDEGIC [Concomitant]
     Route: 048
  5. RAMIPRIL [Concomitant]
     Route: 048
  6. BISOPROLOL [Concomitant]
     Route: 048

REACTIONS (6)
  - Dysarthria [Recovered/Resolved]
  - Confusional state [Recovered/Resolved]
  - Disorientation [Recovered/Resolved]
  - Atrial fibrillation [Unknown]
  - Gait disturbance [Unknown]
  - Psychomotor retardation [Unknown]
